FAERS Safety Report 6280515-4 (Version None)
Quarter: 2009Q3

REPORT INFORMATION
  Report Type: 
  Country: None (occurrence: None)
  Receive Date: 20090724
  Receipt Date: 20080814
  Transmission Date: 20100115
  Serious: No
  Sender: FDA-Public Use
  Company Number: A0744091A

PATIENT

DRUGS (2)
  1. AVANDIA [Suspect]
     Indication: DRUG USE FOR UNKNOWN INDICATION
  2. NOVOLIN R [Suspect]
     Indication: DRUG USE FOR UNKNOWN INDICATION

REACTIONS (1)
  - HYPERSENSITIVITY [None]
